FAERS Safety Report 9131619 (Version 1)
Quarter: 2013Q1

REPORT INFORMATION
  Report Type: Report from Study
  Country: US (occurrence: US)
  Receive Date: 20130301
  Receipt Date: 20130301
  Transmission Date: 20140127
  Serious: No
  Sender: FDA-Public Use
  Company Number: US-MYLANLABS-2012S1009655

PATIENT
  Age: 47 Year
  Sex: Male

DRUGS (2)
  1. AMNESTEEM CAPSULES [Suspect]
     Indication: FOLLICULITIS
     Route: 048
     Dates: start: 201201, end: 201203
  2. AMNESTEEM CAPSULES [Suspect]
     Indication: FOLLICULITIS
     Route: 048
     Dates: start: 201203, end: 20120502

REACTIONS (2)
  - Drug ineffective for unapproved indication [Not Recovered/Not Resolved]
  - Folliculitis [Not Recovered/Not Resolved]
